FAERS Safety Report 8615923-7 (Version None)
Quarter: 2012Q3

REPORT INFORMATION
  Report Type: 
  Country: None (occurrence: None)
  Receive Date: 20120823
  Receipt Date: 20120817
  Transmission Date: 20120928
  Serious: Yes (Hospitalization)
  Sender: FDA-Public Use
  Company Number: CA-GLAXOSMITHKLINE-A0990131A

PATIENT
  Sex: Male

DRUGS (14)
  1. COD LIVER OIL [Concomitant]
  2. DEXAMETHASONE [Concomitant]
  3. AMLODIPINE [Concomitant]
  4. LOVAZA [Concomitant]
  5. TAMSULOSIN HCL [Concomitant]
  6. CALCIUM [Concomitant]
  7. VITAMIN D [Concomitant]
  8. VOTRIENT [Suspect]
     Indication: RENAL CANCER METASTATIC
     Dosage: 800MG PER DAY
     Route: 048
     Dates: start: 20120706
  9. HYDROMORPHONE HCL [Concomitant]
  10. HYDROMORPHONE HYDROCHLORIDE [Concomitant]
     Dosage: 1MG AS REQUIRED
  11. GARLIC PILLS [Concomitant]
  12. RABEPRAZOLE SODIUM [Concomitant]
  13. LEVOTHYROXINE SODIUM [Concomitant]
  14. ASCORBIC ACID [Concomitant]

REACTIONS (2)
  - TACHYCARDIA [None]
  - FALL [None]
